APPROVED DRUG PRODUCT: LEVLITE
Active Ingredient: ETHINYL ESTRADIOL; LEVONORGESTREL
Strength: 0.02MG;0.1MG **Federal Register determination that product was not discontinued or withdrawn for safety or effectiveness reasons**
Dosage Form/Route: TABLET;ORAL-21
Application: N020860 | Product #001
Applicant: BAYER HEALTHCARE PHARMACEUTICALS INC
Approved: Jul 13, 1998 | RLD: Yes | RS: No | Type: DISCN